FAERS Safety Report 20053349 (Version 2)
Quarter: 2021Q4

REPORT INFORMATION
  Report Type: Spontaneous
  Country: US (occurrence: US)
  Receive Date: 20211110
  Receipt Date: 20211203
  Transmission Date: 20220303
  Serious: No
  Sender: FDA-Public Use
  Company Number: US-PFIZER INC-202101357137

PATIENT
  Age: 12 Year
  Sex: Male
  Weight: 38.56 kg

DRUGS (1)
  1. GENOTROPIN [Suspect]
     Active Substance: SOMATROPIN
     Indication: Growth hormone deficiency
     Dosage: 1.2 MG, 1X/DAY (EVERY NIGHT)
     Dates: start: 20201020

REACTIONS (6)
  - Incorrect dose administered by device [Unknown]
  - Device delivery system issue [Unknown]
  - Device leakage [Unknown]
  - Drug dose omission by device [Unknown]
  - Incorrect dose administered [Unknown]
  - Device physical property issue [Unknown]

NARRATIVE: CASE EVENT DATE: 20210801
